FAERS Safety Report 12466442 (Version 3)
Quarter: 2016Q3

REPORT INFORMATION
  Report Type: Spontaneous
  Country: FR (occurrence: FR)
  Receive Date: 20160615
  Receipt Date: 20160718
  Transmission Date: 20161109
  Serious: Yes (Other)
  Sender: FDA-Public Use
  Company Number: FR-UCBSA-2016021818

PATIENT
  Age: 42 Year
  Sex: Female
  Weight: 106 kg

DRUGS (5)
  1. APROVEL [Concomitant]
     Active Substance: IRBESARTAN
     Indication: HYPERTENSION
     Dosage: 75
     Route: 048
     Dates: start: 20140601
  2. CIMZIA [Suspect]
     Active Substance: CERTOLIZUMAB PEGOL
     Indication: CROHN^S DISEASE
  3. PANTOPRAZOLE [Concomitant]
     Active Substance: PANTOPRAZOLE SODIUM
     Indication: GASTRITIS
     Dosage: UNK
  4. CIMZIA [Suspect]
     Active Substance: CERTOLIZUMAB PEGOL
     Indication: RHEUMATOID ARTHRITIS
     Dosage: 200 MG, EV 15 DAYS
     Route: 058
     Dates: start: 20140227, end: 20160517
  5. IMUREL [Concomitant]
     Active Substance: AZATHIOPRINE SODIUM
     Indication: CROHN^S DISEASE
     Dosage: 50 4 TIMES
     Route: 048
     Dates: start: 201303

REACTIONS (8)
  - Paraesthesia [Not Recovered/Not Resolved]
  - Skin lesion [Not Recovered/Not Resolved]
  - Alopecia [Recovering/Resolving]
  - Gastritis [Recovered/Resolved]
  - Burning sensation [Recovering/Resolving]
  - Off label use [Unknown]
  - Dizziness [Not Recovered/Not Resolved]
  - Weight decreased [Recovered/Resolved]

NARRATIVE: CASE EVENT DATE: 2014
